FAERS Safety Report 7986918-1 (Version None)
Quarter: 2011Q4

REPORT INFORMATION
  Report Type: 
  Country: None (occurrence: None)
  Receive Date: 20111216
  Receipt Date: 20110906
  Transmission Date: 20120403
  Serious: No
  Sender: FDA-Public Use
  Company Number: US-BRISTOL-MYERS SQUIBB COMPANY-16034787

PATIENT
  Sex: Female

DRUGS (11)
  1. OMEPRAZOLE [Concomitant]
  2. LAMICTAL [Concomitant]
  3. ABILIFY [Suspect]
     Indication: DEPRESSION
     Dates: start: 20110101, end: 20110101
  4. CRESTOR [Concomitant]
  5. PRADAXA [Concomitant]
  6. LANTUS [Concomitant]
     Dosage: 1DF:30 UNITS
  7. VITAMIN C [Concomitant]
  8. FUROSEMIDE [Concomitant]
  9. METOPROLOL TARTRATE [Concomitant]
  10. INSULIN [Concomitant]
  11. NOVOLOG [Concomitant]
     Dosage: 1DF:30 UNITS

REACTIONS (1)
  - INSOMNIA [None]
